FAERS Safety Report 8553459-2 (Version None)
Quarter: 2012Q3

REPORT INFORMATION
  Report Type: 
  Country: None (occurrence: None)
  Receive Date: 20120731
  Receipt Date: 20120724
  Transmission Date: 20120928
  Serious: Yes (Death)
  Sender: FDA-Public Use
  Company Number: DE-CELGENEUS-062-21880-12072609

PATIENT
  Age: 70 Year
  Sex: Male
  Weight: 79 kg

DRUGS (7)
  1. DEXAMETHASONE [Suspect]
     Indication: MULTIPLE MYELOMA
     Route: 048
     Dates: start: 20100519, end: 20100525
  2. DEXAMETHASONE [Suspect]
     Dosage: 80 MG/MONTHLY
     Route: 048
     Dates: start: 20101106, end: 20120113
  3. REVLIMID [Suspect]
     Indication: MULTIPLE MYELOMA
     Dosage: 25 MILLIGRAM
     Route: 048
     Dates: start: 20100519, end: 20100525
  4. REVLIMID [Suspect]
     Dosage: 15 MILLIGRAM
     Route: 048
     Dates: start: 20120227, end: 20120321
  5. DEXAMETHASONE [Suspect]
     Dosage: 60 MG/MONTHLY
     Route: 048
     Dates: start: 20100601, end: 20100621
  6. DEXAMETHASONE [Suspect]
     Dosage: 80 MG/MONTHLY
     Route: 048
     Dates: start: 20100624, end: 20100920
  7. DEXAMETHASONE [Suspect]
     Dosage: 40 MG/MONTHLY
     Route: 048
     Dates: start: 20101002, end: 20101102

REACTIONS (2)
  - CIRCULATORY COLLAPSE [None]
  - CARDIAC ARREST [None]
